FAERS Safety Report 6370508-0 (Version None)
Quarter: 2009Q3

REPORT INFORMATION
  Report Type: 
  Country: None (occurrence: None)
  Receive Date: 20090923
  Receipt Date: 20090921
  Transmission Date: 20100115
  Serious: Yes (Congenital Anomaly)
  Sender: FDA-Public Use
  Company Number: A0681148A

PATIENT
  Sex: Male
  Weight: 2 kg

DRUGS (3)
  1. PAXIL [Suspect]
     Indication: DEPRESSION
     Dosage: 20MG PER DAY
     Dates: start: 20050701
  2. PAROXETINE HCL [Suspect]
     Indication: DEPRESSION
  3. PAROXETINE HCL [Suspect]

REACTIONS (6)
  - ATRIAL SEPTAL DEFECT [None]
  - ATRIOVENTRICULAR SEPTAL DEFECT [None]
  - DRUG EXPOSURE DURING PREGNANCY [None]
  - MITRAL VALVE INCOMPETENCE [None]
  - PERICARDIAL EFFUSION [None]
  - PULMONARY VALVE STENOSIS [None]
